FAERS Safety Report 4960920-6 (Version None)
Quarter: 2006Q1

REPORT INFORMATION
  Report Type: 
  Country: None (occurrence: None)
  Receive Date: 20060201
  Receipt Date: 20041214
  Transmission Date: 20060701
  Serious: Yes (Death)
  Sender: FDA-Public Use
  Company Number: 04P-163-0274452-00

PATIENT
  Age: 47 Year
  Sex: Female

DRUGS (3)
  1. DEPACON [Suspect]
     Indication: STATUS EPILEPTICUS
     Dosage: 1 GM, ONCE, THEN 750 MG TO 1 GM TID, INTRAVENOUS
     Route: 042
  2. DEPACON [Suspect]
     Indication: SUBDURAL HAEMATOMA
     Dosage: 1 GM, ONCE, THEN 750 MG TO 1 GM TID, INTRAVENOUS
     Route: 042
  3. FOSPHENYTOIN SODIUM [Concomitant]

REACTIONS (1)
  - PANCREATITIS HAEMORRHAGIC [None]
